FAERS Safety Report 11442695 (Version 1)
Quarter: 2015Q3

REPORT INFORMATION
  Report Type: Report from Study
  Country: AU (occurrence: AU)
  Receive Date: 20150901
  Receipt Date: 20150901
  Transmission Date: 20151125
  Serious: Yes (Other)
  Sender: FDA-Public Use
  Company Number: AU-ABBVIE-15P-008-1452464-00

PATIENT
  Age: 78 Year
  Sex: Male

DRUGS (1)
  1. LUCRIN DEPOT [Suspect]
     Active Substance: LEUPROLIDE ACETATE
     Indication: PROSTATE CANCER
     Route: 050
     Dates: start: 20150109

REACTIONS (5)
  - Peripheral artery angioplasty [Unknown]
  - Fall [Recovering/Resolving]
  - Back injury [Recovering/Resolving]
  - Contusion [Recovering/Resolving]
  - Cholecystectomy [Recovering/Resolving]

NARRATIVE: CASE EVENT DATE: 20150618
